FAERS Safety Report 13274938 (Version 6)
Quarter: 2017Q3

REPORT INFORMATION
  Report Type: Spontaneous
  Country: US (occurrence: US)
  Receive Date: 20170227
  Receipt Date: 20170731
  Transmission Date: 20171127
  Serious: Yes (Other)
  Sender: FDA-Public Use
  Company Number: US-BAUSCH-BL-2017-004663

PATIENT
  Age: 54 Year
  Sex: Female

DRUGS (9)
  1. LOTEMAX [Suspect]
     Active Substance: LOTEPREDNOL ETABONATE
     Dosage: INTO THE RIGHT EYE ON MONDAYS AND FRIDAYS
     Route: 047
  2. FLUOROMETHOLONE. [Suspect]
     Active Substance: FLUOROMETHOLONE
     Indication: PRODUCT USED FOR UNKNOWN INDICATION
     Dosage: ONLY ONCE
     Route: 065
  3. LOTEMAX [Suspect]
     Active Substance: LOTEPREDNOL ETABONATE
     Dosage: INTO THE RIGHT EYE
     Route: 047
  4. LOTEMAX [Suspect]
     Active Substance: LOTEPREDNOL ETABONATE
     Route: 047
     Dates: start: 201611, end: 20170220
  5. LOTEMAX [Suspect]
     Active Substance: LOTEPREDNOL ETABONATE
     Indication: PROPHYLAXIS
     Dosage: INTO THE RIGHT EYE
     Route: 047
     Dates: start: 2008, end: 20170220
  6. LOTEMAX [Suspect]
     Active Substance: LOTEPREDNOL ETABONATE
     Dosage: ONE DROP EVERY MONDAY, WEDNESDAY AND FRIDAY IN RIGHT EYE
     Route: 047
     Dates: start: 2017
  7. LOTEMAX [Suspect]
     Active Substance: LOTEPREDNOL ETABONATE
     Dosage: INTO THE RIGHT EYE ON MONDAYS, WEDNESDAYS AND FRIDAYS
     Route: 047
  8. LOTEMAX [Suspect]
     Active Substance: LOTEPREDNOL ETABONATE
     Indication: PRODUCT USED FOR UNKNOWN INDICATION
     Dosage: INTO THE RIGHT EYE ON MONDAYS, WEDNESDAYS, AND FRIDAYS.
     Route: 047
     Dates: start: 20170220
  9. LOTEMAX [Suspect]
     Active Substance: LOTEPREDNOL ETABONATE
     Dosage: AFTER 1 DOSE
     Route: 047
     Dates: start: 201703

REACTIONS (10)
  - Dry skin [Unknown]
  - Product quality issue [Unknown]
  - Corneal scar [Recovered/Resolved]
  - Condition aggravated [Recovered/Resolved]
  - Ocular hyperaemia [Recovered/Resolved]
  - Application site pain [Unknown]
  - Eyelid disorder [Unknown]
  - Product physical consistency issue [Unknown]
  - Application site erythema [Recovered/Resolved]
  - Headache [Unknown]

NARRATIVE: CASE EVENT DATE: 201605
